FAERS Safety Report 7039257-X (Version None)
Quarter: 2010Q4

REPORT INFORMATION
  Report Type: 
  Country: None (occurrence: None)
  Receive Date: 20101012
  Receipt Date: 20101006
  Transmission Date: 20110411
  Serious: Yes (Other)
  Sender: FDA-Public Use
  Company Number: US-PFIZER INC-2010127490

PATIENT
  Age: 89 Year
  Sex: Male

DRUGS (1)
  1. TRIAZOLAM [Suspect]
     Indication: INSOMNIA
     Dosage: 0.125 MG, 1X/DAY
     Route: 048
     Dates: start: 20100901

REACTIONS (3)
  - DEPRESSED MOOD [None]
  - INSOMNIA [None]
  - SUICIDAL IDEATION [None]
